FAERS Safety Report 8269918-6 (Version None)
Quarter: 2012Q2

REPORT INFORMATION
  Report Type: 
  Country: None (occurrence: None)
  Receive Date: 20120410
  Receipt Date: 20120402
  Transmission Date: 20120825
  Serious: Yes (Life-Threatening)
  Sender: FDA-Public Use
  Company Number: JP-SANOFI-AVENTIS-2012SA021173

PATIENT
  Age: 66 Year
  Sex: Male
  Weight: 48 kg

DRUGS (5)
  1. LANTUS [Suspect]
     Indication: TYPE 2 DIABETES MELLITUS
     Dosage: DOSE:8 UNIT(S)
     Route: 058
     Dates: start: 20090123
  2. ORAL ANTIDIABETICS [Concomitant]
     Indication: TYPE 2 DIABETES MELLITUS
     Dates: start: 20000707
  3. BIGUANIDES [Concomitant]
     Indication: TYPE 2 DIABETES MELLITUS
     Dates: start: 20010713
  4. INSULIN ASPART [Concomitant]
     Indication: TYPE 2 DIABETES MELLITUS
     Dosage: DOSE: 24 U DIVIDED INTO 3 DOSES
     Route: 058
     Dates: start: 20071024
  5. HMG COA REDUCTASE INHIBITORS [Concomitant]

REACTIONS (1)
  - NEOPLASM MALIGNANT [None]
